FAERS Safety Report 11692148 (Version 1)
Quarter: 2015Q4

REPORT INFORMATION
  Report Type: Spontaneous
  Country: BR (occurrence: BR)
  Receive Date: 20151103
  Receipt Date: 20151103
  Transmission Date: 20160304
  Serious: Yes (Other)
  Sender: FDA-Public Use
  Company Number: BR-ASTRAZENECA-2015SF06014

PATIENT
  Age: 63 Year
  Sex: Male
  Weight: 92 kg

DRUGS (5)
  1. FELODIPINE. [Suspect]
     Active Substance: FELODIPINE
     Route: 048
  2. METFORMIN [Concomitant]
     Active Substance: METFORMIN HYDROCHLORIDE
     Indication: TYPE 2 DIABETES MELLITUS
  3. CANDESARTAN [Suspect]
     Active Substance: CANDESARTAN
     Indication: HYPERTENSION
     Route: 048
  4. ROSUVASTATIN [Suspect]
     Active Substance: ROSUVASTATIN
     Indication: DYSLIPIDAEMIA
     Route: 048
  5. DAPAGLIFLOZIN [Suspect]
     Active Substance: DAPAGLIFLOZIN
     Route: 048

REACTIONS (3)
  - Blood cholesterol increased [Unknown]
  - Acute myocardial infarction [Unknown]
  - Weight decreased [Unknown]
